FAERS Safety Report 7022529-2 (Version None)
Quarter: 2010Q3

REPORT INFORMATION
  Report Type: 
  Country: None (occurrence: None)
  Receive Date: 20100930
  Receipt Date: 20100921
  Transmission Date: 20110219
  Serious: Yes (Other)
  Sender: FDA-Public Use
  Company Number: JP-PFIZER INC-2010119152

PATIENT
  Age: 40 Year
  Sex: Male

DRUGS (2)
  1. ZITHROMAC SR [Suspect]
     Indication: URETHRITIS
     Dosage: 2 G, SINGLE
     Route: 048
  2. ZITHROMAC SR [Suspect]
     Dosage: 2 G, SINGLE
     Route: 048
     Dates: start: 20100917, end: 20100917

REACTIONS (2)
  - HYPOAESTHESIA [None]
  - MYALGIA [None]
